FAERS Safety Report 23338767 (Version 1)
Quarter: 2023Q4

REPORT INFORMATION
  Report Type: Spontaneous
  Country: CN (occurrence: None)
  Receive Date: 20231226
  Receipt Date: 20231226
  Transmission Date: 20240109
  Serious: Yes (Hospitalization, Other)
  Sender: FDA-Public Use
  Company Number: 2023A292100

PATIENT
  Age: 25801 Day
  Sex: Female

DRUGS (3)
  1. TAGRISSO [Suspect]
     Active Substance: OSIMERTINIB
     Indication: Lung adenocarcinoma
     Route: 048
     Dates: start: 201708
  2. TAGRISSO [Suspect]
     Active Substance: OSIMERTINIB
     Indication: EGFR gene mutation
     Route: 048
     Dates: start: 201708
  3. DOMPERIDONE [Concomitant]
     Active Substance: DOMPERIDONE
     Indication: Dyspepsia
     Route: 048
     Dates: start: 20231209, end: 20231213

REACTIONS (3)
  - Atrioventricular block complete [Unknown]
  - Malignant neoplasm progression [Unknown]
  - Cardiac failure [Unknown]

NARRATIVE: CASE EVENT DATE: 20231214
